FAERS Safety Report 11518930 (Version 1)
Quarter: 2015Q3

REPORT INFORMATION
  Report Type: Spontaneous
  Country: JP (occurrence: JP)
  Receive Date: 20150917
  Receipt Date: 20150917
  Transmission Date: 20151125
  Serious: Yes (Other)
  Sender: FDA-Public Use
  Company Number: PHHY2015JP110685

PATIENT
  Age: 44 Year
  Sex: Male

DRUGS (5)
  1. PREDNISOLONE. [Suspect]
     Active Substance: PREDNISOLONE
     Dosage: 4 MG, QD
     Route: 065
  2. METHOTREXATE [Suspect]
     Active Substance: METHOTREXATE
     Indication: IMMUNE SYSTEM DISORDER
     Route: 065
  3. PREDNISOLONE. [Suspect]
     Active Substance: PREDNISOLONE
     Indication: IMMUNE SYSTEM DISORDER
     Dosage: 30 MG, QD
     Route: 065
  4. CYCLOPHOSPHAMIDE. [Suspect]
     Active Substance: CYCLOPHOSPHAMIDE
     Indication: IMMUNE SYSTEM DISORDER
     Route: 065
  5. MIZORIBINE [Suspect]
     Active Substance: MIZORIBINE
     Indication: IMMUNE SYSTEM DISORDER
     Route: 065

REACTIONS (2)
  - Immune system disorder [Unknown]
  - Disease recurrence [Unknown]
